FAERS Safety Report 12836830 (Version 4)
Quarter: 2016Q4

REPORT INFORMATION
  Report Type: Report from Study
  Country: DE (occurrence: DE)
  Receive Date: 20161011
  Receipt Date: 20161123
  Transmission Date: 20170207
  Serious: Yes (Hospitalization, Other)
  Sender: FDA-Public Use
  Company Number: PHHY2016DE106097

PATIENT
  Sex: Female
  Weight: 57 kg

DRUGS (3)
  1. AFINITOR [Suspect]
     Active Substance: EVEROLIMUS
     Indication: BREAST CANCER METASTATIC
     Dosage: 5 MG, QD
     Route: 048
     Dates: start: 20160522, end: 20161102
  2. EXEMESTANE. [Concomitant]
     Active Substance: EXEMESTANE
     Dosage: 25 MG, QD
     Route: 048
     Dates: start: 20161116
  3. EXEMESTANE. [Concomitant]
     Active Substance: EXEMESTANE
     Indication: BREAST CANCER METASTATIC
     Dosage: 25 MG, QD
     Route: 048
     Dates: start: 20160522, end: 20161102

REACTIONS (20)
  - Radiation skin injury [Recovered/Resolved]
  - Pleural effusion [Unknown]
  - Anaemia [Recovering/Resolving]
  - Malignant neoplasm progression [Recovering/Resolving]
  - Dyspnoea [Recovered/Resolved]
  - Blood potassium decreased [Recovered/Resolved]
  - General physical health deterioration [Recovering/Resolving]
  - General physical health deterioration [Recovered/Resolved]
  - Wound dehiscence [Recovered/Resolved]
  - Purulence [Recovered/Resolved]
  - General physical health deterioration [Recovered/Resolved]
  - Axillary pain [Recovered/Resolved]
  - Cardiomegaly [Unknown]
  - Tumour pain [Recovering/Resolving]
  - Erythema [Recovered/Resolved]
  - Anaemia of malignant disease [Not Recovered/Not Resolved]
  - Skin hyperpigmentation [Recovered/Resolved]
  - Cardiac failure chronic [Recovering/Resolving]
  - Dyspnoea [Recovering/Resolving]
  - Pulmonary congestion [Unknown]

NARRATIVE: CASE EVENT DATE: 20160621
